FAERS Safety Report 25276116 (Version 1)
Quarter: 2025Q2

REPORT INFORMATION
  Report Type: Other
  Country: IT (occurrence: IT)
  Receive Date: 20250507
  Receipt Date: 20250507
  Transmission Date: 20250717
  Serious: Yes (Hospitalization)
  Sender: Alora Pharma
  Company Number: IT-VERTICAL PHARMACEUTICALS-2025ALO02189

PATIENT
  Age: 23 Year
  Sex: Male

DRUGS (2)
  1. ESTRADIOL [Suspect]
     Active Substance: ESTRADIOL
     Indication: Gender reassignment therapy
     Dates: start: 20240405, end: 20250405
  2. CYPROTERONE ACETATE [Suspect]
     Active Substance: CYPROTERONE ACETATE
     Indication: Gender reassignment therapy
     Dosage: 50 MG,24 HR
     Dates: start: 20240405, end: 20250405

REACTIONS (7)
  - Off label use [None]
  - Product use issue [None]
  - Pelvic venous thrombosis [None]
  - Pulmonary embolism [None]
  - Dyspnoea [None]
  - Abdominal pain [None]
  - Vomiting [None]

NARRATIVE: CASE EVENT DATE: 20250405
